FAERS Safety Report 10102481 (Version 1)
Quarter: 2014Q2

REPORT INFORMATION
  Report Type: Spontaneous
  Country: SA (occurrence: SA)
  Receive Date: 20140424
  Receipt Date: 20140424
  Transmission Date: 20141212
  Serious: Yes (Hospitalization, Other)
  Sender: FDA-Public Use
  Company Number: SA-WATSON-2014-07863

PATIENT
  Age: 68 Year
  Sex: Female

DRUGS (1)
  1. CEFAZOLIN (UNKNOWN) [Suspect]
     Indication: ANTIBIOTIC PROPHYLAXIS
     Dosage: UNK
     Route: 065

REACTIONS (2)
  - Clostridium difficile colitis [Recovered/Resolved]
  - Vomiting [Recovered/Resolved]
